FAERS Safety Report 12091761 (Version 2)
Quarter: 2016Q1

REPORT INFORMATION
  Report Type: Spontaneous
  Country: JP (occurrence: JP)
  Receive Date: 20160218
  Receipt Date: 20160229
  Transmission Date: 20160526
  Serious: Yes (Life-Threatening)
  Sender: FDA-Public Use
  Company Number: JP-009507513-1602JPN005948

PATIENT
  Age: 23 Year
  Sex: Female

DRUGS (1)
  1. BELSOMRA [Suspect]
     Active Substance: SUVOREXANT
     Dosage: 560 MG, QD
     Route: 048
     Dates: start: 201602, end: 201602

REACTIONS (3)
  - Altered state of consciousness [Unknown]
  - Overdose [Unknown]
  - Respiratory depression [Unknown]

NARRATIVE: CASE EVENT DATE: 201602
